FAERS Safety Report 5038765-0 (Version None)
Quarter: 2006Q2

REPORT INFORMATION
  Report Type: 
  Country: None (occurrence: None)
  Receive Date: 20060601
  Receipt Date: 20060330
  Transmission Date: 20061013
  Serious: No
  Sender: FDA-Public Use
  Company Number: 2005PV003462

PATIENT
  Age: 58 Year
  Sex: Female
  Weight: 127.0072 kg

DRUGS (6)
  1. BYETTA [Suspect]
     Indication: DIABETES MELLITUS NON-INSULIN-DEPENDENT
     Dosage: SEE IMAGE
     Route: 058
     Dates: start: 20050901, end: 20050101
  2. BYETTA [Suspect]
     Indication: DIABETES MELLITUS NON-INSULIN-DEPENDENT
     Dosage: SEE IMAGE
     Route: 058
     Dates: start: 20051005, end: 20051101
  3. ALLERGY SHOT [Concomitant]
  4. GLUCOPHAGE [Concomitant]
  5. AMARYL [Concomitant]
  6. METFORMIN [Concomitant]

REACTIONS (8)
  - CONSTIPATION [None]
  - DECREASED APPETITE [None]
  - INJECTION SITE PRURITUS [None]
  - INJECTION SITE SWELLING [None]
  - INJECTION SITE URTICARIA [None]
  - RASH GENERALISED [None]
  - THROAT IRRITATION [None]
  - WEIGHT DECREASED [None]
